FAERS Safety Report 8115372-4 (Version None)
Quarter: 2012Q1

REPORT INFORMATION
  Report Type: 
  Country: None (occurrence: None)
  Receive Date: 20120206
  Receipt Date: 20120206
  Transmission Date: 20120608
  Serious: No
  Sender: FDA-Public Use
  Company Number: None

PATIENT
  Sex: Female
  Weight: 82.1 kg

DRUGS (1)
  1. ACIPHEX [Suspect]
     Indication: GASTROOESOPHAGEAL REFLUX DISEASE
     Dosage: 20 MG.
     Route: 048
     Dates: start: 20120202, end: 20120203

REACTIONS (11)
  - MIDDLE INSOMNIA [None]
  - SWOLLEN TONGUE [None]
  - CHEST PAIN [None]
  - GASTROINTESTINAL PAIN [None]
  - GASTRIC DILATATION [None]
  - NAUSEA [None]
  - RHINORRHOEA [None]
  - SALIVARY HYPERSECRETION [None]
  - FLATULENCE [None]
  - DYSPNOEA [None]
  - TONGUE BITING [None]
